FAERS Safety Report 14974138 (Version 1)
Quarter: 2018Q2

REPORT INFORMATION
  Report Type: Spontaneous
  Country: FR (occurrence: FR)
  Receive Date: 20180605
  Receipt Date: 20180605
  Transmission Date: 20180711
  Serious: Yes (Hospitalization, Other)
  Sender: FDA-Public Use
  Company Number: FR-PFIZER INC-2018220013

PATIENT
  Age: 46 Year
  Sex: Female
  Weight: 92 kg

DRUGS (10)
  1. THERALENE [Concomitant]
     Active Substance: TRIMEPRAZINE
     Dosage: 1 DF, 1X/DAY
     Route: 048
  2. SULFARLEM [Concomitant]
     Active Substance: ANETHOLTRITHION
     Dosage: 4 DF, 1X/DAY
     Route: 048
  3. IMOVANE [Suspect]
     Active Substance: ZOPICLONE
     Dosage: 14 DF, SINGLE
     Route: 048
     Dates: start: 20180212, end: 20180212
  4. SERESTA [Suspect]
     Active Substance: OXAZEPAM
     Dosage: 39 DF, SINGLE
     Route: 048
     Dates: start: 20180212, end: 20180212
  5. XEROQUEL [Suspect]
     Active Substance: QUETIAPINE FUMARATE
     Dosage: 2 DF, SINGLE
     Route: 048
     Dates: start: 20180212, end: 20180212
  6. CHLORPROMAZINE. [Suspect]
     Active Substance: CHLORPROMAZINE
     Dosage: 250 MG, SINGLE
     Route: 048
     Dates: start: 20180212, end: 20180212
  7. TOPIRAMATE. [Suspect]
     Active Substance: TOPIRAMATE
     Dosage: 200 MG, SINGLE
     Route: 048
     Dates: start: 20180212, end: 20180212
  8. EFFEXOR [Suspect]
     Active Substance: VENLAFAXINE HYDROCHLORIDE
     Dosage: 8 DF, SINGLE
     Route: 048
     Dates: start: 20180212, end: 20180212
  9. PROPRANOLOL [Suspect]
     Active Substance: PROPRANOLOL HYDROCHLORIDE
     Dosage: 8 DF, SINGLE
     Route: 048
     Dates: start: 20180212, end: 20180212
  10. NORSET [Suspect]
     Active Substance: MIRTAZAPINE
     Dosage: 7 DF, SINGLE
     Route: 048
     Dates: start: 20180212, end: 20180212

REACTIONS (2)
  - Suicide attempt [Unknown]
  - Altered state of consciousness [Recovered/Resolved]

NARRATIVE: CASE EVENT DATE: 20180212
